FAERS Safety Report 10818125 (Version 1)
Quarter: 2015Q1

REPORT INFORMATION
  Report Type: Spontaneous
  Country: US (occurrence: US)
  Receive Date: 20150218
  Receipt Date: 20150218
  Transmission Date: 20150721
  Serious: No
  Sender: FDA-Public Use
  Company Number: US-GLAXOSMITHKLINE-US2014037126

PATIENT
  Age: 80 Year
  Sex: Male

DRUGS (14)
  1. DOCQLACE [Concomitant]
     Active Substance: DOCUSATE SODIUM
  2. TIMOLOL [Concomitant]
     Active Substance: TIMOLOL
  3. VOTRIENT [Suspect]
     Active Substance: PAZOPANIB HYDROCHLORIDE
     Indication: LUNG NEOPLASM MALIGNANT
     Dosage: 400 MG, QD
  4. VOTRIENT [Suspect]
     Active Substance: PAZOPANIB HYDROCHLORIDE
     Indication: RENAL CANCER
  5. VITAMIN B12 [Concomitant]
     Active Substance: CYANOCOBALAMIN
  6. FUROSEMIDE. [Concomitant]
     Active Substance: FUROSEMIDE
  7. CHLORZOXAZONE. [Concomitant]
     Active Substance: CHLORZOXAZONE
  8. IRON [Concomitant]
     Active Substance: IRON
  9. ASPIRINE [Concomitant]
     Active Substance: ASPIRIN
  10. VOTRIENT [Suspect]
     Active Substance: PAZOPANIB HYDROCHLORIDE
     Indication: RENAL SURGERY
     Dosage: 800 MG, QD
     Route: 048
     Dates: start: 20141209, end: 20141215
  11. AMITRIPTYLINE [Concomitant]
     Active Substance: AMITRIPTYLINE
  12. ISOSORBIDE [Concomitant]
     Active Substance: ISOSORBIDE
  13. CARVEDILOL. [Concomitant]
     Active Substance: CARVEDILOL
  14. MAGNESIUM [Concomitant]
     Active Substance: MAGNESIUM

REACTIONS (4)
  - Nausea [Recovered/Resolved]
  - Malaise [Recovered/Resolved]
  - Dizziness [Recovered/Resolved]
  - Adverse drug reaction [Unknown]

NARRATIVE: CASE EVENT DATE: 20141214
